FAERS Safety Report 8082909-3 (Version None)
Quarter: 2012Q1

REPORT INFORMATION
  Report Type: 
  Country: None (occurrence: None)
  Receive Date: 20120127
  Receipt Date: 20110121
  Transmission Date: 20120608
  Serious: No
  Sender: FDA-Public Use
  Company Number: US-ABBOTT-11P-163-0700648-00

PATIENT
  Sex: Female
  Weight: 59.928 kg

DRUGS (11)
  1. NEXIUM [Concomitant]
     Indication: PRODUCT USED FOR UNKNOWN INDICATION
  2. ZANTAC [Concomitant]
     Indication: PRODUCT USED FOR UNKNOWN INDICATION
  3. UNKNOWN [Concomitant]
     Indication: PRODUCT USED FOR UNKNOWN INDICATION
  4. HUMIRA [Suspect]
     Indication: ANKYLOSING SPONDYLITIS
     Route: 058
     Dates: start: 20101020
  5. PROZAC [Concomitant]
     Indication: PRODUCT USED FOR UNKNOWN INDICATION
  6. SKELAXIN [Concomitant]
     Indication: PRODUCT USED FOR UNKNOWN INDICATION
  7. IMODIUM [Concomitant]
     Indication: PRODUCT USED FOR UNKNOWN INDICATION
  8. ASACOL [Concomitant]
     Indication: PRODUCT USED FOR UNKNOWN INDICATION
  9. MULTI-VITAMIN [Concomitant]
     Indication: PRODUCT USED FOR UNKNOWN INDICATION
  10. BENADRYL [Concomitant]
     Indication: SLEEP DISORDER
  11. PREDNISONE TAB [Concomitant]
     Indication: PAIN
     Dosage: DECREASING DOSES
     Dates: start: 20101101, end: 20110101

REACTIONS (8)
  - LOCALISED INFECTION [None]
  - IMPAIRED HEALING [None]
  - PAIN IN EXTREMITY [None]
  - BACK PAIN [None]
  - NODULE [None]
  - GENITAL RASH [None]
  - ALOPECIA [None]
  - PRURITUS [None]
